FAERS Safety Report 4718885-8 (Version None)
Quarter: 2005Q3

REPORT INFORMATION
  Report Type: 
  Country: None (occurrence: None)
  Receive Date: 20050720
  Receipt Date: 20050711
  Transmission Date: 20060218
  Serious: Yes (Death)
  Sender: FDA-Public Use
  Company Number: 200510309BYL

PATIENT
  Age: 60 Year
  Sex: Female
  Weight: 47 kg

DRUGS (9)
  1. ASPIRIN [Suspect]
     Indication: PERIPHERAL VASCULAR DISORDER
     Dosage: SEE IMAGE
     Route: 048
     Dates: start: 20031111, end: 20040106
  2. ASPIRIN [Suspect]
     Indication: PERIPHERAL VASCULAR DISORDER
     Dosage: SEE IMAGE
     Route: 048
     Dates: start: 20040309, end: 20040409
  3. SARPOGRELATE HYDROCHLORIDE [Concomitant]
  4. ASPARA K [Concomitant]
  5. ALDACTONE [Concomitant]
  6. PURSENNIDE [Concomitant]
  7. ALOSENN [Concomitant]
  8. MYSLEE [Concomitant]
  9. METHIMAZOLE [Concomitant]

REACTIONS (7)
  - BASEDOW'S DISEASE [None]
  - CARDIO-RESPIRATORY ARREST [None]
  - COMPUTERISED TOMOGRAM ABNORMAL [None]
  - MALAISE [None]
  - PRURITUS GENERALISED [None]
  - PULMONARY ALVEOLAR HAEMORRHAGE [None]
  - VASCULITIS [None]
